FAERS Safety Report 15468809 (Version 2)
Quarter: 2018Q4

REPORT INFORMATION
  Report Type: Report from Study
  Country: JP (occurrence: JP)
  Receive Date: 20181005
  Receipt Date: 20181018
  Transmission Date: 20190204
  Serious: Yes (Death, Hospitalization, Other)
  Sender: FDA-Public Use
  Company Number: JP-SA-2014SA167079

PATIENT
  Age: 6 Year
  Sex: Female

DRUGS (19)
  1. CLOFARABINE. [Suspect]
     Active Substance: CLOFARABINE
     Dosage: 40 MG/M2, QD
     Route: 042
     Dates: start: 20130902, end: 20130905
  2. ETOPOSIDE. [Concomitant]
     Active Substance: ETOPOSIDE
     Dosage: 150 MG/M2, QD
     Route: 042
     Dates: start: 20130805, end: 20130807
  3. ATARAX-P [HYDROXYZINE HYDROCHLORIDE] [Concomitant]
     Indication: ACUTE LYMPHOCYTIC LEUKAEMIA
     Route: 042
     Dates: start: 20130805, end: 20130808
  4. CLOFARABINE. [Suspect]
     Active Substance: CLOFARABINE
     Dosage: 50 MG/M2, QD
     Route: 042
     Dates: start: 20140318, end: 20140319
  5. CLOFARABINE. [Suspect]
     Active Substance: CLOFARABINE
     Dosage: 30 MG/M2, QD
     Route: 042
     Dates: start: 20140320, end: 20140322
  6. SAXIZON [Concomitant]
     Active Substance: HYDROCORTISONE SODIUM SUCCINATE
     Indication: ACUTE LYMPHOCYTIC LEUKAEMIA
     Route: 042
     Dates: start: 20130626, end: 20130630
  7. ATARAX-P [HYDROXYZINE HYDROCHLORIDE] [Concomitant]
     Route: 042
     Dates: start: 20130902, end: 20130905
  8. ETOPOSIDE. [Concomitant]
     Active Substance: ETOPOSIDE
     Dosage: 150 MG/M2, QD
     Route: 042
     Dates: start: 20130902, end: 20130905
  9. CYCLOPHOSPHAMIDE MONOHYDRATE [Concomitant]
     Active Substance: CYCLOPHOSPHAMIDE
     Dosage: 400 MG/M2, QD
     Route: 042
     Dates: start: 20130805, end: 20130807
  10. CLOFARABINE. [Suspect]
     Active Substance: CLOFARABINE
     Indication: ACUTE LYMPHOCYTIC LEUKAEMIA RECURRENT
     Dosage: 40 MG/M2, QD
     Route: 042
     Dates: start: 20130805, end: 20130807
  11. SOL-MELCORT [Concomitant]
     Active Substance: METHYLPREDNISOLONE SODIUM SUCCINATE
     Indication: ACUTE LYMPHOCYTIC LEUKAEMIA
     Dosage: 60 MG/M2, QD
     Route: 042
     Dates: start: 20130804, end: 20130808
  12. CLOFARABINE. [Suspect]
     Active Substance: CLOFARABINE
     Indication: ACUTE LYMPHOCYTIC LEUKAEMIA
     Dosage: 40 MG/M2, QD
     Route: 042
     Dates: start: 20130626, end: 20130628
  13. ETOPOSIDE. [Concomitant]
     Active Substance: ETOPOSIDE
     Indication: ACUTE LYMPHOCYTIC LEUKAEMIA
     Dosage: 150 MG/M2, QD
     Route: 042
     Dates: start: 20130626, end: 20130628
  14. CYCLOPHOSPHAMIDE MONOHYDRATE [Concomitant]
     Active Substance: CYCLOPHOSPHAMIDE
     Indication: ACUTE LYMPHOCYTIC LEUKAEMIA
     Dosage: 400 MG/M2, QD
     Route: 042
     Dates: start: 20130626, end: 20130628
  15. CYCLOPHOSPHAMIDE MONOHYDRATE [Concomitant]
     Active Substance: CYCLOPHOSPHAMIDE
     Dosage: 400 MG/M2, QD
     Route: 042
     Dates: start: 20130902, end: 20130905
  16. DIAMOX [ACETAZOLAMIDE SODIUM] [Concomitant]
     Indication: ACUTE LYMPHOCYTIC LEUKAEMIA
     Route: 042
     Dates: start: 20130626, end: 20130628
  17. SOL-MELCORT [Concomitant]
     Active Substance: METHYLPREDNISOLONE SODIUM SUCCINATE
     Dosage: 60 MG/M2, QD
     Route: 042
     Dates: start: 20140901, end: 20140905
  18. GRAN [Suspect]
     Active Substance: FILGRASTIM
     Indication: PRODUCT USED FOR UNKNOWN INDICATION
     Route: 065
  19. GASTER [FAMOTIDINE] [Concomitant]
     Indication: ACUTE LYMPHOCYTIC LEUKAEMIA
     Route: 042
     Dates: start: 20130626, end: 20130630

REACTIONS (7)
  - Infection [Recovered/Resolved]
  - Capillary leak syndrome [Recovered/Resolved]
  - Liver disorder [Recovered/Resolved]
  - Respiratory failure [Recovered/Resolved]
  - Pyrexia [Recovered/Resolved]
  - Infection [Recovered/Resolved]
  - Liver disorder [Recovered/Resolved]

NARRATIVE: CASE EVENT DATE: 20130628
